FAERS Safety Report 17394440 (Version 1)
Quarter: 2020Q1

REPORT INFORMATION
  Report Type: Spontaneous
  Country: SE (occurrence: SE)
  Receive Date: 20200210
  Receipt Date: 20200210
  Transmission Date: 20200409
  Serious: Yes (Other)
  Sender: FDA-Public Use
  Company Number: SE-TEVA-2020-SE-1183256

PATIENT
  Age: 71 Year
  Sex: Female

DRUGS (1)
  1. BRIEKA [Suspect]
     Active Substance: PREGABALIN
     Dosage: 200 MG
     Route: 065

REACTIONS (4)
  - Anxiety [Unknown]
  - Mood swings [Unknown]
  - Apathy [Unknown]
  - Panic reaction [Unknown]

NARRATIVE: CASE EVENT DATE: 202001
